FAERS Safety Report 15429460 (Version 1)
Quarter: 2018Q3

REPORT INFORMATION
  Report Type: Report from Study
  Country: US (occurrence: US)
  Receive Date: 20180926
  Receipt Date: 20180926
  Transmission Date: 20181010
  Serious: Yes (Hospitalization)
  Sender: FDA-Public Use
  Company Number: US-BAYER-2018-176424

PATIENT
  Age: 62 Year
  Sex: Female

DRUGS (7)
  1. VITAMIN D [Concomitant]
     Active Substance: CHOLECALCIFEROL
  2. LISINOPRIL. [Concomitant]
     Active Substance: LISINOPRIL
  3. METHADONE [Concomitant]
     Active Substance: METHADONE HYDROCHLORIDE
  4. FERROUS SULFATE. [Concomitant]
     Active Substance: FERROUS SULFATE
  5. LACTULOSE. [Concomitant]
     Active Substance: LACTULOSE
  6. NEXAVAR [Suspect]
     Active Substance: SORAFENIB
     Indication: HEPATOCELLULAR CARCINOMA
     Dosage: 200 MG, BID
     Route: 048
     Dates: start: 20180627, end: 2018
  7. CALCIUM [CALCIUM] [Concomitant]
     Active Substance: CALCIUM

REACTIONS (3)
  - Off label use [None]
  - Hepatocellular carcinoma [Not Recovered/Not Resolved]
  - Hospitalisation [None]
